FAERS Safety Report 4402749-3 (Version None)
Quarter: 2004Q3

REPORT INFORMATION
  Report Type: 
  Country: None (occurrence: None)
  Receive Date: 20040721
  Receipt Date: 20040520
  Transmission Date: 20050211
  Serious: No
  Sender: FDA-Public Use
  Company Number: US-BRISTOL-MYERS SQUIBB COMPANY-12591863

PATIENT
  Age: 62 Year
  Sex: Female

DRUGS (1)
  1. ESTRACE [Suspect]

REACTIONS (1)
  - HYPERPLASIA [None]
